FAERS Safety Report 4950778-3 (Version None)
Quarter: 2006Q1

REPORT INFORMATION
  Report Type: 
  Country: None (occurrence: None)
  Receive Date: 20060322
  Receipt Date: 20021101
  Transmission Date: 20060701
  Serious: Yes (Other)
  Sender: FDA-Public Use
  Company Number: DE-BRISTOL-MYERS SQUIBB COMPANY-13309190

PATIENT
  Age: 40 Year
  Sex: Male
  Weight: 95 kg

DRUGS (9)
  1. ZERIT [Suspect]
     Indication: HIV INFECTION
     Dosage: 2X40 MG STOPPED IN OCT-1997, RESTARTED IN JAN-2000
     Dates: start: 19960201
  2. VIDEX [Suspect]
     Indication: HIV INFECTION
     Dosage: 1X400 MG OCT-1997 FOR 54 WEEKS; RESTARTED IN JAN-2000
     Dates: start: 19971001
  3. ZIDOVUDINE [Concomitant]
     Indication: HIV INFECTION
     Dosage: 2X250 MG-STOPPED FEB-1996; RESTARTED JAN-1999 FOR 52 WEEKS
     Dates: start: 19950101
  4. ZALCITABINE [Concomitant]
     Indication: HIV INFECTION
     Dosage: 3X0
     Dates: start: 19960101, end: 19960201
  5. LAMIVUDINE [Concomitant]
     Indication: HIV INFECTION
     Dosage: 2X150 MG-STOPPED OCT-1997, RESTARTED JAN-1999 FOR 52 WEEKS
     Dates: start: 19960201
  6. INDINIVIR SULFATE [Concomitant]
     Indication: HIV INFECTION
     Dosage: 3X800 MG
     Dates: start: 19960701, end: 19971001
  7. SAQUINAVIR [Concomitant]
     Indication: HIV INFECTION
     Dosage: 3X400 MG OCT-1997 FOR 54 WEEKS; RESTARTED IN JAN-1999 2X1600 MG FOR 52 WEEKS
     Dates: start: 19971001
  8. RITONAVIR [Concomitant]
     Indication: HIV INFECTION
     Dosage: 2X600 MG
     Dates: start: 19971001
  9. NELFINAVIR [Concomitant]
     Indication: HIV INFECTION
     Dosage: 3X750 MG
     Dates: start: 20000101

REACTIONS (20)
  - ABDOMINAL DISTENSION [None]
  - CONSTIPATION [None]
  - FAT TISSUE INCREASED [None]
  - FLATULENCE [None]
  - GASTROINTESTINAL DISORDER [None]
  - GOITRE [None]
  - HEPATITIS B [None]
  - HERPES ZOSTER [None]
  - LYMPHADENOPATHY [None]
  - MIGRAINE [None]
  - MUSCLE DISORDER [None]
  - OESOPHAGEAL CANDIDIASIS [None]
  - OPPORTUNISTIC INFECTION [None]
  - PALLANAESTHESIA [None]
  - PANCREATIC INSUFFICIENCY [None]
  - POLYNEUROPATHY [None]
  - SEBORRHOEIC DERMATITIS [None]
  - TOXOPLASMOSIS [None]
  - TUBERCULOSIS [None]
  - UMBILICAL HERNIA [None]
